FAERS Safety Report 7425722-X (Version None)
Quarter: 2011Q2

REPORT INFORMATION
  Report Type: 
  Country: None (occurrence: None)
  Receive Date: 20110420
  Receipt Date: 20110408
  Transmission Date: 20111010
  Serious: Yes (Other)
  Sender: FDA-Public Use
  Company Number: US-SANOFI-AVENTIS-2011SA021918

PATIENT
  Age: 72 Year
  Sex: Male

DRUGS (6)
  1. FUROSEMIDE [Concomitant]
     Route: 065
  2. RAMIPRIL [Concomitant]
     Route: 065
  3. WARFARIN [Concomitant]
     Route: 065
  4. TESTOSTERONE [Concomitant]
     Route: 065
  5. TADALAFIL [Concomitant]
     Route: 065
  6. DRONEDARONE [Suspect]
     Indication: ATRIAL FIBRILLATION
     Route: 065

REACTIONS (5)
  - DYSPNOEA [None]
  - ORGANISING PNEUMONIA [None]
  - PRODUCTIVE COUGH [None]
  - EOSINOPHILIA [None]
  - RESPIRATORY FAILURE [None]
